FAERS Safety Report 18005089 (Version 2)
Quarter: 2020Q3

REPORT INFORMATION
  Report Type: Other
  Country: US (occurrence: US)
  Receive Date: 20200709
  Receipt Date: 20200807
  Transmission Date: 20201103
  Serious: Yes (Life-Threatening, Other)
  Sender: FDA-Public Use
  Company Number: US-STANDARD HOMEOPATHIC COMPANY-2087192

PATIENT
  Age: 6 Month
  Sex: Male

DRUGS (1)
  1. BABY TEETHING (HYLAND HOMEOPATHIC) [Suspect]
     Active Substance: HOMEOPATHICS
     Indication: ANALGESIC THERAPY
     Route: 048
     Dates: start: 20200623, end: 20200625

REACTIONS (1)
  - Seizure [Unknown]
